FAERS Safety Report 8141547-4 (Version None)
Quarter: 2012Q1

REPORT INFORMATION
  Report Type: 
  Country: None (occurrence: None)
  Receive Date: 20120216
  Receipt Date: 20120214
  Transmission Date: 20120608
  Serious: Yes (Other)
  Sender: FDA-Public Use
  Company Number: JP-B.I. PHARMACEUTICALS,INC./RIDGEFIELD-2012-BP-02952NB

PATIENT
  Age: 83 Year
  Sex: Male

DRUGS (5)
  1. PRADAXA [Suspect]
     Indication: ATRIAL FIBRILLATION
     Dosage: 220 MG
     Route: 048
     Dates: start: 20111130
  2. LEVOFLOXACIN [Concomitant]
     Route: 048
  3. CLARITHROMYCIN [Concomitant]
     Route: 048
  4. ZITHROMAX [Concomitant]
     Route: 048
  5. CARVEDILOL [Concomitant]
     Route: 048

REACTIONS (2)
  - PULMONARY OEDEMA [None]
  - INTERSTITIAL LUNG DISEASE [None]
